FAERS Safety Report 9734562 (Version 3)
Quarter: 2014Q2

REPORT INFORMATION
  Report Type: Report from Study
  Country: MX (occurrence: MX)
  Receive Date: 20131206
  Receipt Date: 20140623
  Transmission Date: 20141212
  Serious: Yes (Hospitalization)
  Sender: FDA-Public Use
  Company Number: MX-BRISTOL-MYERS SQUIBB COMPANY-19873116

PATIENT
  Age: 68 Year
  Sex: Female
  Weight: 45 kg

DRUGS (4)
  1. BLINDED: CETUXIMAB [Suspect]
     Indication: SQUAMOUS CELL CARCINOMA OF HEAD AND NECK
     Dosage: 400MG/M2,D1 OF CYCLE 1 ONLY?100MG/M2,D1?13OCT11 : 250 MG/M2,D1,D8,D15
     Route: 042
     Dates: start: 20111006, end: 20111006
  2. CARBOPLATIN [Suspect]
     Indication: SQUAMOUS CELL CARCINOMA OF HEAD AND NECK
     Dosage: AUC 5,D1?RESTARTED:03NOV2011
     Route: 042
     Dates: start: 20111103, end: 20111124
  3. CISPLATIN [Suspect]
     Indication: SQUAMOUS CELL CARCINOMA OF HEAD AND NECK
     Route: 042
     Dates: start: 20111006, end: 20111006
  4. 5-FLUOROURACIL [Suspect]
     Indication: SQUAMOUS CELL CARCINOMA OF HEAD AND NECK
     Dosage: 4600MG/M2?RESTARTED:03NOV2011
     Route: 042
     Dates: start: 20111006, end: 20111128

REACTIONS (4)
  - Thrombocytopenia [Recovered/Resolved]
  - Thrombosis in device [None]
  - Renal failure [None]
  - Neutropenia [None]
